FAERS Safety Report 19175375 (Version 2)
Quarter: 2021Q2

REPORT INFORMATION
  Report Type: Spontaneous
  Country: US (occurrence: US)
  Receive Date: 20210424
  Receipt Date: 20210514
  Transmission Date: 20210717
  Serious: No
  Sender: FDA-Public Use
  Company Number: US-LEADINGPHARMA-US-2021LEASPO00140

PATIENT
  Age: 72 Year
  Sex: Male
  Weight: 190 kg

DRUGS (2)
  1. LORAZEPAM TABLETS USP [Suspect]
     Active Substance: LORAZEPAM
     Indication: SLEEP DISORDER
     Route: 048
     Dates: start: 20210406
  2. PAROXETINE. [Concomitant]
     Active Substance: PAROXETINE
     Indication: DEPRESSION
     Route: 065

REACTIONS (4)
  - Product taste abnormal [Unknown]
  - Insomnia [Recovered/Resolved]
  - Product substitution issue [Unknown]
  - Drug ineffective for unapproved indication [Unknown]

NARRATIVE: CASE EVENT DATE: 20210406
